FAERS Safety Report 17727124 (Version 1)
Quarter: 2020Q2

REPORT INFORMATION
  Report Type: Spontaneous
  Country: CA (occurrence: CA)
  Receive Date: 20200430
  Receipt Date: 20200430
  Transmission Date: 20200714
  Serious: Yes (Other)
  Sender: FDA-Public Use
  Company Number: CA-BAXTER-2020BAX008808

PATIENT
  Age: 32 Year
  Sex: Female

DRUGS (9)
  1. PARALDEHYDE [Suspect]
     Active Substance: PARALDEHYDE
     Indication: PRODUCT USED FOR UNKNOWN INDICATION
     Route: 065
  2. VALPROIC ACID. [Suspect]
     Active Substance: VALPROIC ACID
     Indication: PRODUCT USED FOR UNKNOWN INDICATION
     Dosage: NOT SPECIFIED
     Route: 065
  3. FORANE [Suspect]
     Active Substance: ISOFLURANE
     Indication: PRODUCT USED FOR UNKNOWN INDICATION
     Dosage: LIQUID INHALATION
     Route: 065
  4. PHENOBARBITAL. [Suspect]
     Active Substance: PHENOBARBITAL
     Indication: PRODUCT USED FOR UNKNOWN INDICATION
     Dosage: NOT SPECIFIED
     Route: 065
  5. LIDOCAINE. [Suspect]
     Active Substance: LIDOCAINE
     Indication: PRODUCT USED FOR UNKNOWN INDICATION
     Dosage: OINTMENT TOPICAL
     Route: 061
  6. PHENOBARBITAL. [Suspect]
     Active Substance: PHENOBARBITAL
     Route: 065
  7. DIAZEPAM. [Suspect]
     Active Substance: DIAZEPAM
     Indication: PRODUCT USED FOR UNKNOWN INDICATION
     Dosage: NOT SPECIFIED
     Route: 042
  8. LORAZEPAM. [Suspect]
     Active Substance: LORAZEPAM
     Indication: PRODUCT USED FOR UNKNOWN INDICATION
     Dosage: NOT SPECIFIED
     Route: 042
  9. PHENYTOIN. [Suspect]
     Active Substance: PHENYTOIN
     Indication: PRODUCT USED FOR UNKNOWN INDICATION
     Route: 065

REACTIONS (3)
  - Hypotension [Unknown]
  - Drug ineffective [Unknown]
  - Status epilepticus [Unknown]
